FAERS Safety Report 6881626-2 (Version None)
Quarter: 2010Q3

REPORT INFORMATION
  Report Type: 
  Country: None (occurrence: None)
  Receive Date: 20100729
  Receipt Date: 20100720
  Transmission Date: 20110219
  Serious: No
  Sender: FDA-Public Use
  Company Number: US-BIOGENIDEC-2010BI025080

PATIENT
  Age: 60 Year
  Sex: Female

DRUGS (1)
  1. TYSABRI [Suspect]
     Indication: MULTIPLE SCLEROSIS
     Route: 030
     Dates: start: 20070731

REACTIONS (6)
  - CONSTIPATION [None]
  - CYSTITIS [None]
  - HEADACHE [None]
  - PAIN [None]
  - RASH [None]
  - VAGINAL INFECTION [None]
